FAERS Safety Report 7944636-X (Version None)
Quarter: 2011Q4

REPORT INFORMATION
  Report Type: 
  Country: None (occurrence: None)
  Receive Date: 20111122
  Receipt Date: 20110805
  Transmission Date: 20120403
  Serious: Yes (Other)
  Sender: FDA-Public Use
  Company Number: PHHY2011US24691

PATIENT
  Age: 30 Year
  Sex: Female

DRUGS (9)
  1. TRAZODONE HCL [Concomitant]
  2. MONAVIE DRINK [Concomitant]
  3. TRAMADOL HCL [Concomitant]
  4. MULTIVITAMINS (ASCORBIC ACID, ERGOCALCIFEROL, FOLIC ACID, NICOTINAMIDE [Concomitant]
  5. PROVIGIL [Concomitant]
  6. FISH OIL (FISH OIL) [Concomitant]
  7. VITAMIN E [Concomitant]
  8. GILENYA [Suspect]
     Indication: MULTIPLE SCLEROSIS
     Dosage: 0.5 MG, QD, ORAL
     Route: 048
     Dates: start: 20110309
  9. MAGNESIUM (MAGNESIUM) [Concomitant]

REACTIONS (6)
  - GENITAL HERPES [None]
  - ABDOMINAL PAIN [None]
  - NAUSEA [None]
  - MUSCLE SPASMS [None]
  - MALAISE [None]
  - ABDOMINAL DISCOMFORT [None]
